FAERS Safety Report 5167459-6 (Version None)
Quarter: 2006Q4

REPORT INFORMATION
  Report Type: 
  Country: None (occurrence: None)
  Receive Date: 20061130
  Receipt Date: 20061115
  Transmission Date: 20070319
  Serious: Yes (Other)
  Sender: FDA-Public Use
  Company Number: 2006SP006811

PATIENT
  Age: 12 Year

DRUGS (1)
  1. AERIUS (DESLORATADINE) (DESLORATADINE) [Suspect]
     Dosage: 0 DF; UNK; PO
     Route: 048

REACTIONS (1)
  - RAYNAUD'S PHENOMENON [None]
